FAERS Safety Report 7831707-1 (Version None)
Quarter: 2011Q4

REPORT INFORMATION
  Report Type: 
  Country: None (occurrence: None)
  Receive Date: 20111021
  Receipt Date: 20111011
  Transmission Date: 20120403
  Serious: Yes (Hospitalization)
  Sender: FDA-Public Use
  Company Number: US-MUTUAL PHARMACEUTICAL COMPANY, INC.-FDER20110003

PATIENT
  Age: 89 Year
  Sex: Male
  Weight: 68.1 kg

DRUGS (14)
  1. FELODIPINE [Suspect]
     Indication: HYPERTENSION
     Route: 048
     Dates: start: 20100101
  2. VERAPAMIL [Suspect]
     Indication: HYPERTENSION
     Route: 048
  3. ^JOINT PAIN^ [Concomitant]
     Indication: ARTHRITIS
     Route: 048
     Dates: start: 20080101
  4. METOPROLOL TARTRATE [Suspect]
     Indication: PRODUCT USED FOR UNKNOWN INDICATION
     Route: 048
     Dates: start: 20100101, end: 20110101
  5. CRESTOR [Concomitant]
     Indication: BLOOD CHOLESTEROL INCREASED
     Route: 048
     Dates: start: 20100101, end: 20110601
  6. DIGOXIN [Concomitant]
     Indication: PRODUCT USED FOR UNKNOWN INDICATION
     Route: 048
     Dates: start: 20110101, end: 20110101
  7. PREDNISONE [Suspect]
     Indication: INFLAMMATION
     Route: 048
     Dates: start: 20110101, end: 20110701
  8. PRAVASTATIN [Suspect]
     Indication: BLOOD CHOLESTEROL INCREASED
     Route: 048
     Dates: start: 20110601
  9. TORSEMIDE [Suspect]
     Indication: PRODUCT USED FOR UNKNOWN INDICATION
     Route: 048
  10. MIRTAZAPINE [Suspect]
     Indication: DEPRESSION
     Route: 048
     Dates: start: 20080101
  11. FISH OIL [Concomitant]
     Indication: PRODUCT USED FOR UNKNOWN INDICATION
     Route: 048
     Dates: start: 20080101
  12. COQ10 [Concomitant]
     Indication: UBIQUINONE
     Route: 048
     Dates: start: 20110101
  13. ALLOPURINOL [Concomitant]
     Indication: GOUT
     Route: 048
  14. PLAVIX [Concomitant]
     Indication: ANTICOAGULANT THERAPY
     Route: 048

REACTIONS (8)
  - DIZZINESS [None]
  - UNRESPONSIVE TO STIMULI [None]
  - CHEST DISCOMFORT [None]
  - DRUG INTERACTION [None]
  - MUSCULAR WEAKNESS [None]
  - VISION BLURRED [None]
  - PRE-EXISTING CONDITION IMPROVED [None]
  - HEADACHE [None]
